FAERS Safety Report 6310553-4 (Version None)
Quarter: 2009Q3

REPORT INFORMATION
  Report Type: 
  Country: None (occurrence: None)
  Receive Date: 20090814
  Receipt Date: 20090803
  Transmission Date: 20100115
  Serious: Yes (Hospitalization)
  Sender: FDA-Public Use
  Company Number: FR-WYE-H10586809

PATIENT
  Sex: Male

DRUGS (9)
  1. INIPOMP [Suspect]
     Route: 048
  2. SYMBICORT [Suspect]
     Dosage: 400/12 MCG 4 TIMES DAILY
     Route: 055
  3. DAFALGAN [Suspect]
     Route: 048
  4. VENTOLIN [Suspect]
     Dosage: UNKNOWN
     Route: 055
  5. HYDROCORTISONE [Suspect]
     Route: 048
  6. KARDEGIC [Suspect]
     Route: 048
  7. XOLAIR [Suspect]
     Route: 058
     Dates: start: 20090408
  8. XOLAIR [Suspect]
     Route: 058
     Dates: start: 20090702
  9. OXEOL [Suspect]
     Route: 048

REACTIONS (4)
  - AMNESIA [None]
  - BLOOD CREATINE PHOSPHOKINASE INCREASED [None]
  - CEREBELLAR ISCHAEMIA [None]
  - LACUNAR INFARCTION [None]
